FAERS Safety Report 5532411-5 (Version None)
Quarter: 2007Q4

REPORT INFORMATION
  Report Type: 
  Country: None (occurrence: None)
  Receive Date: 20071203
  Receipt Date: 20071120
  Transmission Date: 20080405
  Serious: Yes (Life-Threatening, Other)
  Sender: FDA-Public Use
  Company Number: GB-AMGEN-US254592

PATIENT
  Age: 70 Year
  Sex: Male

DRUGS (3)
  1. ENBREL [Suspect]
     Indication: AMYLOIDOSIS
     Route: 058
     Dates: start: 20070430, end: 20071001
  2. LISINOPRIL [Concomitant]
     Indication: BLOOD PRESSURE INCREASED
     Dosage: 10MG FREQUENCY UNKNOWN
     Route: 048
  3. BENDROFLUAZIDE [Concomitant]
     Dosage: 2.5MG FREQUENCY UNKNOWN
     Route: 048

REACTIONS (1)
  - CATHETER SEPSIS [None]
